FAERS Safety Report 11700640 (Version 1)
Quarter: 2015Q4

REPORT INFORMATION
  Report Type: Spontaneous
  Country: US (occurrence: US)
  Receive Date: 20151105
  Receipt Date: 20151105
  Transmission Date: 20160304
  Serious: Yes (Other)
  Sender: FDA-Public Use
  Company Number: US-AMGEN-USASP2015114574

PATIENT
  Age: 28 Year
  Sex: Female

DRUGS (1)
  1. SENSIPAR [Suspect]
     Active Substance: CINACALCET HYDROCHLORIDE
     Indication: HYPERPARATHYROIDISM
     Dosage: 150 MG, UNK
     Route: 048
     Dates: start: 201503

REACTIONS (4)
  - Multiple endocrine neoplasia Type 1 [Unknown]
  - Ejection fraction decreased [Unknown]
  - Pregnancy [Unknown]
  - Cardiomyopathy [Unknown]

NARRATIVE: CASE EVENT DATE: 201508
